FAERS Safety Report 7629178-3 (Version None)
Quarter: 2011Q3

REPORT INFORMATION
  Report Type: 
  Country: None (occurrence: None)
  Receive Date: 20110722
  Receipt Date: 20110711
  Transmission Date: 20111222
  Serious: Yes (Other)
  Sender: FDA-Public Use
  Company Number: PHHY2011US61545

PATIENT
  Age: 58 Year
  Sex: Female

DRUGS (1)
  1. GENTEAL [Suspect]
     Indication: DRY EYE
     Dosage: 1-2 DROPS AT BEDTIME
     Route: 047
     Dates: start: 20110611

REACTIONS (1)
  - NIGHT BLINDNESS [None]
